FAERS Safety Report 11427582 (Version 1)
Quarter: 2015Q3

REPORT INFORMATION
  Report Type: Spontaneous
  Country: US (occurrence: US)
  Receive Date: 20150827
  Receipt Date: 20150827
  Transmission Date: 20151125
  Serious: No
  Sender: FDA-Public Use
  Company Number: US-SA-2015SA045906

PATIENT
  Sex: Female

DRUGS (3)
  1. AVAPRO [Concomitant]
     Active Substance: IRBESARTAN
     Indication: STENT PLACEMENT
  2. IRBESARTAN WINTHROP [Suspect]
     Active Substance: IRBESARTAN
     Route: 065
  3. AVAPRO [Concomitant]
     Active Substance: IRBESARTAN
     Indication: CARDIAC DISORDER

REACTIONS (1)
  - Unevaluable event [Unknown]
